FAERS Safety Report 19146796 (Version 7)
Quarter: 2024Q2

REPORT INFORMATION
  Report Type: Spontaneous
  Country: US (occurrence: US)
  Receive Date: 20210416
  Receipt Date: 20240606
  Transmission Date: 20240716
  Serious: No
  Sender: FDA-Public Use
  Company Number: US-PFIZER INC-2021376950

PATIENT
  Age: 68 Year
  Sex: Male
  Weight: 92.99 kg

DRUGS (18)
  1. XELJANZ XR [Suspect]
     Active Substance: TOFACITINIB CITRATE
     Indication: Psoriatic arthropathy
     Dosage: 11 MG, 1X/DAY
     Route: 048
  2. ASPIRIN [Concomitant]
     Active Substance: ASPIRIN
  3. AUGMENTIN [Concomitant]
     Active Substance: AMOXICILLIN\CLAVULANATE POTASSIUM
  4. CINNAMON OIL [Concomitant]
     Active Substance: CINNAMON OIL
  5. DICLOFENAC [Concomitant]
     Active Substance: DICLOFENAC
  6. PROSCAR [Concomitant]
     Active Substance: FINASTERIDE
  7. FLONASE [Concomitant]
     Active Substance: FLUTICASONE PROPIONATE
  8. AMARYL [Concomitant]
     Active Substance: GLIMEPIRIDE
  9. KRILL OIL [Concomitant]
     Active Substance: DIETARY SUPPLEMENT\KRILL OIL
  10. PRINIVIL [Concomitant]
     Active Substance: LISINOPRIL
  11. MOBIC [Concomitant]
     Active Substance: MELOXICAM
  12. PRILOSEC [Concomitant]
     Active Substance: OMEPRAZOLE MAGNESIUM
  13. ACTOS [Concomitant]
     Active Substance: PIOGLITAZONE HYDROCHLORIDE
  14. MEDROL [Concomitant]
     Active Substance: METHYLPREDNISOLONE
  15. METFORMIN [Concomitant]
     Active Substance: METFORMIN HYDROCHLORIDE
  16. ZOCOR [Concomitant]
     Active Substance: SIMVASTATIN
  17. TAMSULOSIN [Concomitant]
     Active Substance: TAMSULOSIN
  18. AMBIEN [Concomitant]
     Active Substance: ZOLPIDEM TARTRATE

REACTIONS (3)
  - Mental disorder [Unknown]
  - Joint stiffness [Unknown]
  - Intentional product misuse [Unknown]
